FAERS Safety Report 20585923 (Version 2)
Quarter: 2022Q2

REPORT INFORMATION
  Report Type: Spontaneous
  Country: US (occurrence: US)
  Receive Date: 20220312
  Receipt Date: 20220411
  Transmission Date: 20220720
  Serious: No
  Sender: FDA-Public Use
  Company Number: US-SA-SAC20220303001372

PATIENT
  Age: 25 Year
  Sex: Female

DRUGS (6)
  1. DUPIXENT [Suspect]
     Active Substance: DUPILUMAB
     Indication: Asthma
     Dosage: 300 MG, QOW
     Route: 058
     Dates: start: 20220112
  2. MUPIROCIN [Concomitant]
     Active Substance: MUPIROCIN
  3. AZELASTINE [Concomitant]
     Active Substance: AZELASTINE
  4. DIPHENHYDRAMINE [Concomitant]
     Active Substance: DIPHENHYDRAMINE
  5. ZYRTEC [Concomitant]
     Active Substance: CETIRIZINE HYDROCHLORIDE
  6. SYMBICORT [Concomitant]
     Active Substance: BUDESONIDE\FORMOTEROL FUMARATE DIHYDRATE

REACTIONS (9)
  - Lower respiratory tract congestion [Unknown]
  - Chest discomfort [Unknown]
  - Dyspnoea [Unknown]
  - Oral pruritus [Unknown]
  - Anxiety [Unknown]
  - Throat irritation [Unknown]
  - Injection site pain [Unknown]
  - Product dose omission issue [Unknown]
  - Drug hypersensitivity [Not Recovered/Not Resolved]
